FAERS Safety Report 8547734-5 (Version None)
Quarter: 2012Q3

REPORT INFORMATION
  Report Type: 
  Country: None (occurrence: None)
  Receive Date: 20120727
  Receipt Date: 20120504
  Transmission Date: 20120928
  Serious: No
  Sender: FDA-Public Use
  Company Number: US-ASTRAZENECA-2012SE28895

PATIENT
  Age: 55 Year
  Sex: Male

DRUGS (10)
  1. SEROQUEL [Suspect]
     Route: 048
     Dates: start: 20081121
  2. SEROQUEL [Suspect]
     Route: 048
     Dates: start: 20100923
  3. SEROQUEL [Suspect]
     Route: 048
     Dates: start: 20090514
  4. SEROQUEL [Suspect]
     Route: 048
     Dates: start: 20100923
  5. SEROQUEL [Suspect]
     Indication: MAJOR DEPRESSION
     Route: 048
     Dates: start: 20061219
  6. SEROQUEL [Suspect]
     Route: 048
     Dates: start: 20090514
  7. EFFEXOR [Concomitant]
     Indication: DEPRESSION
     Dosage: 37.5 MG TO 75 MG
     Dates: start: 20061219
  8. EFFEXOR [Concomitant]
     Dates: start: 20100923
  9. SEROQUEL [Suspect]
     Indication: PSYCHOTIC DISORDER
     Route: 048
     Dates: start: 20061219
  10. SEROQUEL [Suspect]
     Route: 048
     Dates: start: 20081121

REACTIONS (6)
  - OBESITY [None]
  - PAIN [None]
  - EMOTIONAL DISTRESS [None]
  - OVERWEIGHT [None]
  - TYPE 1 DIABETES MELLITUS [None]
  - DIABETES MELLITUS [None]
